FAERS Safety Report 9791647 (Version 1)
Quarter: 2014Q1

REPORT INFORMATION
  Report Type: Report from Study
  Country: US (occurrence: US)
  Receive Date: 20140102
  Receipt Date: 20140102
  Transmission Date: 20141002
  Serious: Yes (Other)
  Sender: FDA-Public Use
  Company Number: US-ROCHE-1328042

PATIENT
  Age: 66 Year
  Sex: Female

DRUGS (4)
  1. AVASTIN [Suspect]
     Indication: COLON CANCER
     Dosage: START DATE : 16/MAY/2012
     Route: 065
  2. FLUOROURACIL [Concomitant]
  3. LEUCOVORIN [Concomitant]
  4. IRINOTECAN [Concomitant]

REACTIONS (2)
  - Metastases to liver [Unknown]
  - Disease progression [Unknown]
